FAERS Safety Report 14310089 (Version 3)
Quarter: 2018Q1

REPORT INFORMATION
  Report Type: Spontaneous
  Country: GB (occurrence: GB)
  Receive Date: 20171220
  Receipt Date: 20180129
  Transmission Date: 20180509
  Serious: Yes (Disabling, Other)
  Sender: FDA-Public Use
  Company Number: PHHY2017GB189036

PATIENT
  Age: 83 Year
  Sex: Female

DRUGS (29)
  1. ONDANSETRON [Concomitant]
     Active Substance: ONDANSETRON
     Indication: PRODUCT USED FOR UNKNOWN INDICATION
     Dosage: 4 MG, TID WHEN REQUIRED
     Route: 065
  2. ONDANSETRON [Concomitant]
     Active Substance: ONDANSETRON
     Dosage: ONE TABLET, 4MG, THREE TIMES DAILY WHEN REQUIRED
     Route: 065
  3. PREDNISOLONE. [Concomitant]
     Active Substance: PREDNISOLONE
     Indication: PRODUCT USED FOR UNKNOWN INDICATION
     Dosage: 1 MG, QD
     Route: 065
     Dates: start: 20060726
  4. CALCIUM CARBONATE. [Concomitant]
     Active Substance: CALCIUM CARBONATE
     Indication: POLYMYALGIA RHEUMATICA
     Dosage: 1 DF, UNK
     Route: 065
  5. LANSOPRAZOLE. [Concomitant]
     Active Substance: LANSOPRAZOLE
     Indication: PRODUCT USED FOR UNKNOWN INDICATION
     Dosage: 30 MG, QD
     Route: 065
     Dates: start: 20140429
  6. LEVOTHYROXINE SODIUM. [Concomitant]
     Active Substance: LEVOTHYROXINE SODIUM
     Indication: HYPOTHYROIDISM
     Dosage: 100 UG, QD
     Route: 065
     Dates: start: 20040824
  7. FLECAINIDE [Concomitant]
     Active Substance: FLECAINIDE
     Indication: POLYMYALGIA RHEUMATICA
  8. ACETYLSALICYLIC ACID [Concomitant]
     Active Substance: ASPIRIN
     Indication: TYPE 2 DIABETES MELLITUS
  9. METRONIDAZOLE. [Suspect]
     Active Substance: METRONIDAZOLE
     Dosage: 400 MG,
     Route: 065
     Dates: start: 20170222
  10. METRONIDAZOLE. [Suspect]
     Active Substance: METRONIDAZOLE
     Indication: DIVERTICULITIS
     Dosage: 1200 MG,
     Route: 065
     Dates: start: 20170222
  11. METRONIDAZOLE. [Suspect]
     Active Substance: METRONIDAZOLE
     Dosage: 400 MG,
     Route: 065
     Dates: start: 201708
  12. RIVAROXABAN [Concomitant]
     Active Substance: RIVAROXABAN
     Indication: ATRIAL FLUTTER
     Dosage: 15 MG, QD
     Route: 065
     Dates: start: 20160607
  13. BISOPROLOL [Concomitant]
     Active Substance: BISOPROLOL
     Indication: POLYMYALGIA RHEUMATICA
     Dosage: 2.5 MG, QD
     Route: 065
     Dates: start: 20090612
  14. FENTANYL. [Concomitant]
     Active Substance: FENTANYL
     Indication: PRODUCT USED FOR UNKNOWN INDICATION
     Dosage: 12 UG/HR, UNK
     Route: 065
     Dates: start: 20160413
  15. FERROUS SULFATE. [Concomitant]
     Active Substance: FERROUS SULFATE
     Indication: ANAEMIA
     Dosage: 400 MG, QD
     Route: 065
     Dates: start: 20161021
  16. FERROUS SULFATE. [Concomitant]
     Active Substance: FERROUS SULFATE
     Dosage: 200 MG,
     Route: 065
     Dates: start: 20161021
  17. FLECAINIDE [Concomitant]
     Active Substance: FLECAINIDE
     Indication: ATRIAL FIBRILLATION
     Dosage: 50 MG, QD (HALF TWICE DAILY)
     Route: 065
     Dates: start: 20090521
  18. METRONIDAZOLE. [Suspect]
     Active Substance: METRONIDAZOLE
     Dosage: 1200 MG,
     Route: 065
     Dates: start: 201706
  19. METRONIDAZOLE. [Suspect]
     Active Substance: METRONIDAZOLE
     Dosage: 1200 MG,
     Route: 065
     Dates: start: 201708
  20. METRONIDAZOLE. [Suspect]
     Active Substance: METRONIDAZOLE
     Dosage: 400 MG,
     Route: 065
     Dates: start: 201706
  21. METRONIDAZOLE. [Suspect]
     Active Substance: METRONIDAZOLE
     Dosage: 400 MG,
     Route: 065
     Dates: start: 201704
  22. RIVAROXABAN [Concomitant]
     Active Substance: RIVAROXABAN
     Indication: TRANSIENT ISCHAEMIC ATTACK
  23. ASPIRIN. [Concomitant]
     Active Substance: ASPIRIN
     Indication: DIVERTICULITIS
     Dosage: 75 MG, QD
     Route: 065
     Dates: start: 20131030
  24. PREDNISOLONE. [Concomitant]
     Active Substance: PREDNISOLONE
     Dosage: 5 MG, QD
     Route: 065
     Dates: start: 20170523
  25. METRONIDAZOLE. [Suspect]
     Active Substance: METRONIDAZOLE
     Dosage: 1200 MG,
     Route: 065
     Dates: start: 201704
  26. METRONIDAZOLE. [Suspect]
     Active Substance: METRONIDAZOLE
     Indication: SEPSIS
     Dosage: 1200 MG,
     Route: 065
  27. RIVAROXABAN [Concomitant]
     Active Substance: RIVAROXABAN
     Indication: INTERNATIONAL NORMALISED RATIO
  28. ASPIRIN. [Concomitant]
     Active Substance: ASPIRIN
     Indication: TYPE 2 DIABETES MELLITUS
  29. ACETYLSALICYLIC ACID [Concomitant]
     Active Substance: ASPIRIN
     Indication: DIVERTICULITIS
     Dosage: 75 MG, UNK
     Route: 065
     Dates: start: 20131030

REACTIONS (5)
  - Peripheral sensorimotor neuropathy [Not Recovered/Not Resolved]
  - Paraesthesia [Not Recovered/Not Resolved]
  - Gait disturbance [Not Recovered/Not Resolved]
  - Fine motor skill dysfunction [Not Recovered/Not Resolved]
  - Hypoaesthesia [Not Recovered/Not Resolved]

NARRATIVE: CASE EVENT DATE: 2017
